FAERS Safety Report 8836992 (Version 1)
Quarter: 2012Q4

REPORT INFORMATION
  Report Type: Report from Study
  Country: JP (occurrence: JP)
  Receive Date: 20121012
  Receipt Date: 20121012
  Transmission Date: 20130627
  Serious: Yes (Other)
  Sender: FDA-Public Use
  Company Number: JP-VERTEX PHARMACEUTICAL INC.-AE-2012-002370

PATIENT
  Age: 63 Year
  Sex: Male

DRUGS (23)
  1. VX-950 [Suspect]
     Indication: HEPATITIS C
     Dosage: 2250 mg, qd
     Route: 048
     Dates: start: 20120210, end: 20120212
  2. VX-950 [Suspect]
     Dosage: 1500 mg, qd
     Route: 048
     Dates: start: 20120213, end: 20120213
  3. VX-950 [Suspect]
     Dosage: 750 mg, qd
     Route: 048
     Dates: start: 20120305, end: 20120507
  4. PEGINTRON                          /01543001/ [Suspect]
     Indication: HEPATITIS C
     Dosage: 1.5 UNK, UNK
     Route: 058
     Dates: start: 20120210
  5. REBETOL [Suspect]
     Indication: HEPATITIS C
     Dosage: 600 mg, qd
     Route: 048
     Dates: start: 20120210, end: 20120213
  6. REBETOL [Suspect]
     Dosage: 600 mg, qd
     Route: 048
     Dates: start: 20120227, end: 20120318
  7. REBETOL [Suspect]
     Dosage: 400 mg, qd
     Route: 048
     Dates: start: 20120319, end: 20120416
  8. REBETOL [Suspect]
     Dosage: 600 mg, qd
     Route: 048
     Dates: start: 20120417, end: 20120521
  9. REBETOL [Suspect]
     Dosage: 400 mg, qd
     Route: 048
     Dates: start: 20120522, end: 20120528
  10. REBETOL [Suspect]
     Dosage: 200 mg, qd
     Route: 048
     Dates: start: 20120604, end: 20120610
  11. REBETOL [Suspect]
     Dosage: 400 mg, qd
     Route: 048
     Dates: start: 20120611, end: 20120617
  12. REBETOL [Suspect]
     Dosage: 600 mg, qd
     Route: 048
     Dates: start: 20120618
  13. URSO                               /00465701/ [Concomitant]
     Dosage: 600 mg, qd
     Route: 048
     Dates: end: 20120603
  14. URSO                               /00465701/ [Concomitant]
     Dosage: 300 mg, qd
     Route: 048
     Dates: start: 20120611, end: 20120729
  15. LEBARAMINE [Concomitant]
     Dosage: 300 mg, qd
     Route: 048
     Dates: end: 20120226
  16. FERROMIA /00023516/ [Concomitant]
     Dosage: 100 mg, qd
     Route: 048
  17. DERMOVATE [Concomitant]
     Dosage: UNK, prn
     Route: 061
     Dates: start: 20120212
  18. ALBUMIN TANNATE [Concomitant]
     Dosage: 3 g, qd
     Route: 048
     Dates: start: 20120213, end: 20120219
  19. MIYA-BM [Concomitant]
     Dosage: 3 g, qd
     Route: 048
     Dates: start: 20120213, end: 20120219
  20. PROHEPARUM [Concomitant]
     Dosage: 6 DF, qd
     Route: 048
     Dates: start: 20120227, end: 20120603
  21. PROHEPARUM [Concomitant]
     Dosage: 3 DF, qd
     Route: 048
     Dates: start: 20120611, end: 20120729
  22. ALOSITOL [Concomitant]
     Dosage: 100 mg, qd
     Route: 048
     Dates: start: 20120312
  23. PRIMPERAN [Concomitant]
     Dosage: UNK, prn
     Route: 048
     Dates: start: 20120213, end: 20120214

REACTIONS (8)
  - Renal failure [Recovered/Resolved]
  - Decreased appetite [Recovered/Resolved]
  - Dehydration [Recovered/Resolved]
  - Anaemia [Not Recovered/Not Resolved]
  - Malaise [None]
  - Nausea [None]
  - Rash [None]
  - Pyrexia [None]
